FAERS Safety Report 13825796 (Version 3)
Quarter: 2017Q3

REPORT INFORMATION
  Report Type: Report from Study
  Country: US (occurrence: US)
  Receive Date: 20170802
  Receipt Date: 20170821
  Transmission Date: 20171127
  Serious: Yes (Death, Hospitalization)
  Sender: FDA-Public Use
  Company Number: US-ACTELION-A-US2017-149956

PATIENT
  Age: 74 Year
  Sex: Male
  Weight: 71.66 kg

DRUGS (5)
  1. SILDENAFIL CITRATE. [Concomitant]
     Active Substance: SILDENAFIL CITRATE
  2. VENTAVIS [Suspect]
     Active Substance: ILOPROST
     Dosage: 2.5 MCG, 6-9X/DAY
     Route: 055
     Dates: start: 20170208
  3. VENTAVIS [Suspect]
     Active Substance: ILOPROST
     Dosage: 5.0 MCG, 6-9X/DAY
     Route: 055
  4. OPSUMIT [Suspect]
     Active Substance: MACITENTAN
     Indication: PULMONARY ARTERIAL HYPERTENSION
     Dosage: 10 MG, QD
     Route: 048
  5. VENTAVIS [Suspect]
     Active Substance: ILOPROST
     Indication: PULMONARY ARTERIAL HYPERTENSION
     Dosage: UNK MCG, UNK
     Route: 055

REACTIONS (7)
  - Lung transplant [Unknown]
  - Death [Fatal]
  - Flushing [Unknown]
  - Pain in jaw [Unknown]
  - Energy increased [Unknown]
  - Peripheral swelling [Unknown]
  - Arthralgia [Unknown]

NARRATIVE: CASE EVENT DATE: 20170208
